FAERS Safety Report 4506720-2 (Version None)
Quarter: 2004Q4

REPORT INFORMATION
  Report Type: 
  Country: None (occurrence: None)
  Receive Date: 20041122
  Receipt Date: 20041111
  Transmission Date: 20050328
  Serious: Yes (Hospitalization)
  Sender: FDA-Public Use
  Company Number: US-MERCK-0411USA02157

PATIENT
  Sex: Female

DRUGS (5)
  1. VIOXX [Suspect]
     Route: 048
  2. POTASSIUM (UNSPECIFIED) [Concomitant]
     Route: 065
  3. [THERAPY UNSPECIFIED] [Concomitant]
     Route: 065
  4. COZAAR [Concomitant]
     Route: 065
  5. PREDNISONE [Concomitant]
     Route: 065

REACTIONS (3)
  - ANOREXIA [None]
  - ARRHYTHMIA [None]
  - WEIGHT DECREASED [None]
